FAERS Safety Report 7518765-9 (Version None)
Quarter: 2011Q2

REPORT INFORMATION
  Report Type: 
  Country: None (occurrence: None)
  Receive Date: 20110602
  Receipt Date: 20110526
  Transmission Date: 20111010
  Serious: Yes (Death)
  Sender: FDA-Public Use
  Company Number: PHHY2010MX30958

PATIENT
  Sex: Female

DRUGS (2)
  1. FEMARA [Suspect]
     Indication: NEOPLASM MALIGNANT
     Dosage: 1 TABLET (2.5  MG) DAILY
     Route: 048
     Dates: start: 20070101
  2. CHEMOTHERAPEUTICS NOS [Concomitant]

REACTIONS (2)
  - HEPATIC CANCER METASTATIC [None]
  - METASTASES TO BONE [None]
